FAERS Safety Report 5252830-4 (Version None)
Quarter: 2007Q1

REPORT INFORMATION
  Report Type: 
  Country: None (occurrence: None)
  Receive Date: 20070301
  Receipt Date: 20070221
  Transmission Date: 20070707
  Serious: Yes (Death)
  Sender: FDA-Public Use
  Company Number: JP-BAYER-200610641BYL

PATIENT
  Age: 53 Year
  Sex: Male

DRUGS (7)
  1. AVELOX [Suspect]
     Indication: BRONCHITIS
     Dosage: TOTAL DAILY DOSE: 400 MG  UNIT DOSE: 400 MG
     Route: 048
     Dates: start: 20060515, end: 20060516
  2. GASTER D [Concomitant]
     Indication: GASTRITIS
     Dosage: TOTAL DAILY DOSE: 20 MG  UNIT DOSE: 20 MG
     Route: 048
     Dates: start: 20050215, end: 20060516
  3. CODEINE PHOSPHATE [Concomitant]
     Indication: LUNG NEOPLASM MALIGNANT
     Dosage: TOTAL DAILY DOSE: 18 G
     Route: 048
     Dates: start: 20050728, end: 20060516
  4. MUCOSOLVAN [Concomitant]
     Indication: LUNG NEOPLASM MALIGNANT
     Dosage: TOTAL DAILY DOSE: 135 MG  UNIT DOSE: 15 MG
     Route: 048
     Dates: start: 20041216, end: 20060516
  5. LOXONIN [Concomitant]
     Indication: LUNG NEOPLASM MALIGNANT
     Dosage: TOTAL DAILY DOSE: 540 MG  UNIT DOSE: 60 MG
     Route: 048
     Dates: start: 20060515, end: 20060516
  6. ADONA [Concomitant]
     Indication: LUNG NEOPLASM MALIGNANT
     Dosage: TOTAL DAILY DOSE: 270 MG  UNIT DOSE: 30 MG
     Route: 048
     Dates: start: 20060515, end: 20060516
  7. TRANSAMIN [Concomitant]
     Indication: LUNG NEOPLASM MALIGNANT
     Dosage: TOTAL DAILY DOSE: 2250 MG  UNIT DOSE: 250 MG
     Route: 048
     Dates: start: 20060515, end: 20060516

REACTIONS (2)
  - CARDIO-RESPIRATORY ARREST [None]
  - HAEMOPTYSIS [None]
